FAERS Safety Report 7740216-X (Version None)
Quarter: 2011Q3

REPORT INFORMATION
  Report Type: 
  Country: None (occurrence: None)
  Receive Date: 20110909
  Receipt Date: 20110909
  Transmission Date: 20111222
  Serious: Yes (Life-Threatening)
  Sender: FDA-Public Use
  Company Number: None

PATIENT
  Age: 53 Year
  Sex: Female
  Weight: 57.606 kg

DRUGS (1)
  1. REBIF [Suspect]
     Indication: MULTIPLE SCLEROSIS
     Dosage: .45
     Dates: start: 20020315, end: 20110209

REACTIONS (3)
  - MENTAL DISORDER [None]
  - DEPRESSION [None]
  - SUICIDE ATTEMPT [None]
